FAERS Safety Report 6862981-6 (Version None)
Quarter: 2010Q3

REPORT INFORMATION
  Report Type: 
  Country: None (occurrence: None)
  Receive Date: 20100721
  Receipt Date: 20100715
  Transmission Date: 20110219
  Serious: Yes (Other)
  Sender: FDA-Public Use
  Company Number: CHPA2010GB11608

PATIENT
  Age: 80 Year
  Sex: Male

DRUGS (1)
  1. SCOPOLAMINE [Suspect]
     Indication: SALIVARY HYPERSECRETION
     Dosage: 1 MG, Q72H
     Route: 062

REACTIONS (4)
  - BLISTER [None]
  - OFF LABEL USE [None]
  - PAIN OF SKIN [None]
  - SKIN IRRITATION [None]
